FAERS Safety Report 23203236 (Version 1)
Quarter: 2023Q4

REPORT INFORMATION
  Report Type: Spontaneous
  Country: JP (occurrence: JP)
  Receive Date: 20231120
  Receipt Date: 20231120
  Transmission Date: 20240110
  Serious: Yes (Hospitalization, Other)
  Sender: FDA-Public Use
  Company Number: JP-TAKEDA-2023TJP011329

PATIENT
  Sex: Male

DRUGS (2)
  1. LEUPLIN [Suspect]
     Active Substance: LEUPROLIDE ACETATE
     Indication: Prostate cancer
     Route: 065
  2. LEUPLIN [Suspect]
     Active Substance: LEUPROLIDE ACETATE
     Route: 065

REACTIONS (2)
  - Hospitalisation [Unknown]
  - Femur fracture [Unknown]
